FAERS Safety Report 10195098 (Version 1)
Quarter: 2014Q2

REPORT INFORMATION
  Report Type: Spontaneous
  Country: GB (occurrence: GB)
  Receive Date: 20140526
  Receipt Date: 20140526
  Transmission Date: 20141212
  Serious: Yes (Other)
  Sender: FDA-Public Use
  Company Number: GB-UCBSA-121444

PATIENT
  Age: 43 Year
  Sex: Male

DRUGS (1)
  1. CIMZIA [Suspect]
     Indication: PSORIATIC ARTHROPATHY
     Dosage: EVERY OTHER WEEK
     Route: 058
     Dates: start: 20140430, end: 20140430

REACTIONS (6)
  - Asthma [Unknown]
  - Lip swelling [Unknown]
  - Renal pain [Unknown]
  - Pharyngeal oedema [Unknown]
  - Rash [Unknown]
  - Headache [Unknown]
